FAERS Safety Report 12197223 (Version 3)
Quarter: 2016Q2

REPORT INFORMATION
  Report Type: Report from Study
  Country: US (occurrence: US)
  Receive Date: 20160321
  Receipt Date: 20160418
  Transmission Date: 20160815
  Serious: No
  Sender: FDA-Public Use
  Company Number: US-AMGEN-USASL2016031999

PATIENT
  Age: 54 Year
  Sex: Female

DRUGS (3)
  1. ENBREL [Suspect]
     Active Substance: ETANERCEPT
     Dosage: UNK
     Route: 065
  2. ENBREL [Suspect]
     Active Substance: ETANERCEPT
     Indication: RHEUMATOID ARTHRITIS
     Dosage: 50 MG, QWK
     Route: 065
  3. ENBREL [Suspect]
     Active Substance: ETANERCEPT
     Dosage: UNK
     Route: 065

REACTIONS (12)
  - Musculoskeletal disorder [Unknown]
  - Drug dose omission [Unknown]
  - Malaise [Unknown]
  - Arthralgia [Unknown]
  - Device difficult to use [Unknown]
  - Device failure [Unknown]
  - Underdose [Unknown]
  - Frustration tolerance decreased [Unknown]
  - Wrong technique in product usage process [Unknown]
  - Visual impairment [Unknown]
  - Condition aggravated [Unknown]
  - Stress [Unknown]

NARRATIVE: CASE EVENT DATE: 201509
